FAERS Safety Report 20819189 (Version 7)
Quarter: 2022Q2

REPORT INFORMATION
  Report Type: Report from Study
  Country: US (occurrence: None)
  Receive Date: 20220512
  Receipt Date: 20220627
  Transmission Date: 20220721
  Serious: Yes (Hospitalization)
  Sender: FDA-Public Use
  Company Number: US-Eisai Medical Research-EC-2022-114624

PATIENT
  Age: 58 Year
  Sex: Male
  Weight: 124.3 kg

DRUGS (18)
  1. LENVATINIB [Suspect]
     Active Substance: LENVATINIB
     Indication: Clear cell renal cell carcinoma
     Route: 048
     Dates: start: 20220112, end: 20220501
  2. LENVATINIB [Suspect]
     Active Substance: LENVATINIB
     Route: 048
     Dates: start: 20220512
  3. PEMBROLIZUMAB [Suspect]
     Active Substance: PEMBROLIZUMAB
     Indication: Clear cell renal cell carcinoma
     Route: 041
     Dates: start: 20220112, end: 20220223
  4. PEMBROLIZUMAB [Suspect]
     Active Substance: PEMBROLIZUMAB
     Route: 041
     Dates: start: 20220406, end: 20220406
  5. PEMBROLIZUMAB [Suspect]
     Active Substance: PEMBROLIZUMAB
     Route: 041
     Dates: start: 20220518
  6. COLCHICINE [Concomitant]
     Active Substance: COLCHICINE
     Dates: start: 20161128
  7. LIPITOR [Concomitant]
     Active Substance: ATORVASTATIN CALCIUM
     Dates: start: 20161213
  8. ASPIRIN [Concomitant]
     Active Substance: ASPIRIN
     Dates: start: 20170124
  9. TRILIPIX [Concomitant]
     Active Substance: FENOFIBRIC ACID
     Dates: start: 20170124
  10. FOLIC ACID [Concomitant]
     Active Substance: FOLIC ACID
     Dates: start: 20200318
  11. CHOLECALCIFEROL [Concomitant]
     Active Substance: CHOLECALCIFEROL
     Dates: start: 20200318, end: 20220508
  12. JANUVIA [Concomitant]
     Active Substance: SITAGLIPTIN PHOSPHATE
     Dates: start: 20200812
  13. AMARYL [Concomitant]
     Active Substance: GLIMEPIRIDE
     Dates: start: 20210616
  14. MELATONIN [Concomitant]
     Active Substance: MELATONIN
     Dates: start: 20210726
  15. INDOMETHACIN [Concomitant]
     Active Substance: INDOMETHACIN
     Dates: start: 20220119
  16. GLY-OXIDE [Concomitant]
     Active Substance: CARBAMIDE PEROXIDE
     Dates: start: 20220225
  17. ALUMINIUM HYDROXIDE;DIPHENHYDRAMINE HYDROCHLORIDE;LIDOCAINE HYDROCHLOR [Concomitant]
     Dates: start: 20220128
  18. LOPRESSOR [Concomitant]
     Active Substance: METOPROLOL TARTRATE
     Dates: start: 20220222, end: 20220501

REACTIONS (1)
  - Acute kidney injury [Recovered/Resolved]

NARRATIVE: CASE EVENT DATE: 20220501
